FAERS Safety Report 18380071 (Version 1)
Quarter: 2020Q4

REPORT INFORMATION
  Report Type: Not Available
  Country: US (occurrence: US)
  Receive Date: 20201013
  Receipt Date: 20201013
  Transmission Date: 20210114
  Serious: Yes (Death)
  Sender: FDA-Public Use
  Company Number: US-NEUROCRINE BIOSCIENCES INC.-2020NBI03668

PATIENT
  Age: 63 Year
  Sex: Female

DRUGS (15)
  1. INGREZZA [Suspect]
     Active Substance: VALBENAZINE
     Indication: TARDIVE DYSKINESIA
     Route: 048
     Dates: start: 20181126, end: 202004
  2. TOPIRAMATE. [Concomitant]
     Active Substance: TOPIRAMATE
  3. BACLOFEN. [Concomitant]
     Active Substance: BACLOFEN
  4. MYRBETRIQ [Concomitant]
     Active Substance: MIRABEGRON
  5. CARAFATE [Concomitant]
     Active Substance: SUCRALFATE
  6. VITAMIN D3 [Concomitant]
     Active Substance: CHOLECALCIFEROL
  7. BUSPIRONE [Concomitant]
     Active Substance: BUSPIRONE HYDROCHLORIDE
  8. ADDERALL [Concomitant]
     Active Substance: AMPHETAMINE ASPARTATE\AMPHETAMINE SULFATE\DEXTROAMPHETAMINE SACCHARATE\DEXTROAMPHETAMINE SULFATE
  9. PANTOPRAZOLE [Concomitant]
     Active Substance: PANTOPRAZOLE
  10. GABAPENTIN. [Concomitant]
     Active Substance: GABAPENTIN
  11. TYLENOL WITH CODEINE [Concomitant]
     Active Substance: ACETAMINOPHEN\CODEINE PHOSPHATE
  12. SEROQUEL [Concomitant]
     Active Substance: QUETIAPINE FUMARATE
  13. CLONAZEPAM. [Concomitant]
     Active Substance: CLONAZEPAM
  14. SERTRALINE [Concomitant]
     Active Substance: SERTRALINE HYDROCHLORIDE
  15. MACROBID [Concomitant]
     Active Substance: NITROFURANTOIN\NITROFURANTOIN MONOHYDRATE

REACTIONS (1)
  - Seizure [Fatal]

NARRATIVE: CASE EVENT DATE: 202004
